FAERS Safety Report 4694940-6 (Version None)
Quarter: 2005Q2

REPORT INFORMATION
  Report Type: 
  Country: None (occurrence: None)
  Receive Date: 20050617
  Receipt Date: 20050601
  Transmission Date: 20051028
  Serious: Yes (Other)
  Sender: FDA-Public Use
  Company Number: DSA_26556_2005

PATIENT
  Age: 25 Year
  Sex: Male

DRUGS (5)
  1. TEMESTA [Suspect]
     Dosage: 1.25 MG Q DAY PO
     Route: 048
     Dates: start: 20050325, end: 20050329
  2. TEMESTA [Concomitant]
     Dosage: 6.25 MG QD DAY PO
     Route: 048
     Dates: start: 20050330
  3. TEMESTA [Suspect]
     Dosage: 6.25 MG Q DAY PO
     Route: 048
     Dates: start: 20050330
  4. TEMESTA [Suspect]
     Dosage: 5 MG Q DAY PO
     Route: 048
     Dates: start: 20050225, end: 20050324
  5. ABILIFY [Suspect]
     Dosage: 15 MG Q DAY PO
     Route: 048
     Dates: start: 20050321

REACTIONS (5)
  - CHILLS [None]
  - DYSKINESIA [None]
  - HYPOKINESIA [None]
  - MUSCLE SPASMS [None]
  - TONGUE DISORDER [None]
